FAERS Safety Report 23877067 (Version 2)
Quarter: 2024Q3

REPORT INFORMATION
  Report Type: Spontaneous
  Country: US (occurrence: US)
  Receive Date: 20240521
  Receipt Date: 20240726
  Transmission Date: 20241017
  Serious: No
  Sender: GLAXOSMITHKLINE
  Company Number: US-GSK-US2024062279

PATIENT
  Sex: Male
  Weight: 122 kg

DRUGS (1)
  1. NUCALA [Suspect]
     Active Substance: MEPOLIZUMAB
     Indication: Nasal polyps
     Dosage: 1 ML, Q4W
     Route: 058
     Dates: start: 20231012, end: 20240517

REACTIONS (1)
  - Drug ineffective [Unknown]
